FAERS Safety Report 11925647 (Version 2)
Quarter: 2016Q1

REPORT INFORMATION
  Report Type: Spontaneous
  Country: JP (occurrence: JP)
  Receive Date: 20160118
  Receipt Date: 20160127
  Transmission Date: 20160526
  Serious: Yes (Hospitalization)
  Sender: FDA-Public Use
  Company Number: JP-AMGEN-JPNSP2016004378

PATIENT
  Age: 7 Decade
  Sex: Female

DRUGS (9)
  1. DENOTAS [Concomitant]
     Active Substance: CALCIUM CARBONATE\CHOLECALCIFEROL\MAGNESIUM CARBONATE
     Indication: PROPHYLAXIS
     Dosage: 2 DF, QD
     Route: 065
     Dates: start: 20151216
  2. GOSHAJINKIGAN [Concomitant]
     Active Substance: HERBALS
     Indication: NEUROSIS
     Dosage: 2.5 G, TID
     Route: 065
     Dates: start: 20151202
  3. TRAMAL [Concomitant]
     Active Substance: TRAMADOL
     Indication: PAIN
     Dosage: 25 MG, BID
     Route: 065
     Dates: start: 20151125
  4. PERJETA [Concomitant]
     Active Substance: PERTUZUMAB
     Indication: BREAST CANCER
     Dosage: 420 MG, QD
     Route: 041
     Dates: start: 20151202, end: 20151224
  5. HERCEPTIN [Concomitant]
     Active Substance: TRASTUZUMAB
     Indication: BREAST CANCER
     Dosage: 222 MG, QD
     Route: 041
     Dates: start: 20151202, end: 20151224
  6. FLAVITAN [Concomitant]
     Active Substance: FLAVIN ADENINE DINUCLEOTIDE
     Indication: STOMATITIS
     Dosage: 10 MG, TID
     Route: 065
     Dates: start: 20151202
  7. PACLITAXEL. [Concomitant]
     Active Substance: PACLITAXEL
     Indication: BREAST CANCER
     Dosage: 102 MG, QD
     Route: 041
     Dates: start: 20151202, end: 20151216
  8. RANMARK [Suspect]
     Active Substance: DENOSUMAB
     Indication: METASTASES TO BONE
     Dosage: 120 MG, Q4WK
     Route: 058
     Dates: start: 20151216
  9. PYDOXAL [Concomitant]
     Active Substance: PYRIDOXAL
     Indication: HYPOVITAMINOSIS
     Dosage: 10 MG, TID
     Route: 065
     Dates: start: 20151202

REACTIONS (1)
  - Femur fracture [Recovering/Resolving]

NARRATIVE: CASE EVENT DATE: 20151231
